FAERS Safety Report 7958897-4 (Version None)
Quarter: 2011Q4

REPORT INFORMATION
  Report Type: 
  Country: None (occurrence: None)
  Receive Date: 20111206
  Receipt Date: 20111128
  Transmission Date: 20120403
  Serious: Yes (Hospitalization)
  Sender: FDA-Public Use
  Company Number: US-ASTELLAS-2011US006864

PATIENT
  Sex: Female
  Weight: 43 kg

DRUGS (1)
  1. TACROLIMUS [Suspect]
     Indication: DERMATITIS ATOPIC
     Dosage: 0.1 %, UID/QD
     Route: 061
     Dates: start: 20050331, end: 20110501

REACTIONS (2)
  - OFF LABEL USE [None]
  - STAPHYLOCOCCAL INFECTION [None]
